FAERS Safety Report 8474972-2 (Version None)
Quarter: 2012Q2

REPORT INFORMATION
  Report Type: 
  Country: None (occurrence: None)
  Receive Date: 20120628
  Receipt Date: 20120626
  Transmission Date: 20120825
  Serious: Yes (Death, Other)
  Sender: FDA-Public Use
  Company Number: PHEH2012US012676

PATIENT
  Sex: Female

DRUGS (2)
  1. NITROGLYCERIN [Suspect]
     Dosage: UNK
     Route: 062
  2. EXELON [Suspect]
     Dosage: UNK
     Route: 062

REACTIONS (2)
  - DEMENTIA ALZHEIMER'S TYPE [None]
  - DEATH [None]
